APPROVED DRUG PRODUCT: GABAPENTIN
Active Ingredient: GABAPENTIN
Strength: 100MG
Dosage Form/Route: CAPSULE;ORAL
Application: A077261 | Product #001
Applicant: TARO PHARMACEUTICAL INDUSTRIES LTD
Approved: Aug 2, 2013 | RLD: No | RS: No | Type: DISCN